FAERS Safety Report 7804777-4 (Version None)
Quarter: 2011Q4

REPORT INFORMATION
  Report Type: 
  Country: None (occurrence: None)
  Receive Date: 20111010
  Receipt Date: 20111004
  Transmission Date: 20120403
  Serious: Yes (Life-Threatening)
  Sender: FDA-Public Use
  Company Number: NL-CELGENEUS-114-21880-11081807

PATIENT
  Sex: Female
  Weight: 81 kg

DRUGS (3)
  1. DAUNORUBICIN HCL [Suspect]
     Dosage: 88 MILLIGRAM
     Route: 041
     Dates: start: 20110728, end: 20110730
  2. REVLIMID [Suspect]
     Dosage: 15 MILLIGRAM
     Route: 048
     Dates: start: 20110728, end: 20110813
  3. CYTARABINE [Suspect]
     Dosage: 390 MILLIGRAM
     Route: 041
     Dates: start: 20110728, end: 20110803

REACTIONS (1)
  - SEPSIS [None]
